FAERS Safety Report 8888428 (Version 3)
Quarter: 2013Q3

REPORT INFORMATION
  Report Type: Spontaneous
  Country: US (occurrence: US)
  Receive Date: 20121106
  Receipt Date: 20130801
  Transmission Date: 20140515
  Serious: Yes (Hospitalization, Other)
  Sender: FDA-Public Use
  Company Number: US-PFIZER INC-2012274431

PATIENT
  Age: 31 Year
  Sex: Female

DRUGS (6)
  1. CHANTIX [Suspect]
     Indication: SMOKING CESSATION THERAPY
     Dosage: 0.5 MG, 1X/DAY
     Route: 048
     Dates: start: 20090515
  2. CHANTIX [Suspect]
     Dosage: 0.5 MG, 2X/DAY
     Route: 048
  3. CHANTIX [Suspect]
     Dosage: 1 MG, 2X/DAY
     Route: 048
  4. CHANTIX [Suspect]
     Dosage: UNK
     Dates: start: 20090515, end: 20090701
  5. KLONOPIN [Concomitant]
     Dosage: 1 MG, 2X/DAY
  6. LAMICTAL [Concomitant]
     Dosage: 100 MG, 1X/DAY, IN THE A.M.

REACTIONS (2)
  - Suicidal ideation [Unknown]
  - Intentional self-injury [Unknown]
